FAERS Safety Report 8879034 (Version 1)
Quarter: 2012Q4

REPORT INFORMATION
  Report Type: Spontaneous
  Country: US (occurrence: None)
  Receive Date: 20121031
  Receipt Date: 20121031
  Transmission Date: 20130627
  Serious: Yes (Other)
  Sender: FDA-Public Use
  Company Number: None

PATIENT
  Age: 48 Year
  Sex: Female

DRUGS (1)
  1. MIRENA IUD [Suspect]

REACTIONS (4)
  - Uterine perforation [None]
  - Sexual dysfunction [None]
  - Pain in extremity [None]
  - Back pain [None]
